FAERS Safety Report 7289988-1 (Version None)
Quarter: 2011Q1

REPORT INFORMATION
  Report Type: 
  Country: None (occurrence: None)
  Receive Date: 20110214
  Receipt Date: 20110125
  Transmission Date: 20110831
  Serious: Yes (Death, Life-Threatening, Other)
  Sender: FDA-Public Use
  Company Number: US-TYCO HEALTHCARE/MALLINCKRODT-T201100155

PATIENT
  Age: 20 Year
  Sex: Male

DRUGS (1)
  1. MORPHINE [Suspect]
     Dosage: 10 TABLETS
     Route: 048

REACTIONS (8)
  - CONVULSION [None]
  - BRONCHOPNEUMONIA [None]
  - HYPOTENSION [None]
  - HYPOXIC-ISCHAEMIC ENCEPHALOPATHY [None]
  - RENAL FAILURE [None]
  - LETHARGY [None]
  - COMPLETED SUICIDE [None]
  - CARDIO-RESPIRATORY ARREST [None]
